FAERS Safety Report 12892579 (Version 1)
Quarter: 2016Q4

REPORT INFORMATION
  Report Type: Spontaneous
  Country: FR (occurrence: FR)
  Receive Date: 20161028
  Receipt Date: 20161028
  Transmission Date: 20170207
  Serious: Yes (Hospitalization)
  Sender: FDA-Public Use
  Company Number: FR-JAZZ-2016-FR-020942

PATIENT

DRUGS (6)
  1. DEXAMETHASONE                      /00016002/ [Concomitant]
     Active Substance: DEXAMETHASONE SODIUM PHOSPHATE
     Indication: TESTIS CANCER
     Dosage: UNK
     Dates: start: 201603
  2. METHOTREXATE. [Concomitant]
     Active Substance: METHOTREXATE
     Indication: TESTIS CANCER
     Dosage: UNK
     Dates: start: 201603
  3. VINCRISTINE [Concomitant]
     Active Substance: VINCRISTINE
     Indication: TESTIS CANCER
     Dosage: UNK
     Dates: start: 201603
  4. PEG/L-ASPARAGINASE [Concomitant]
     Active Substance: PEGASPARGASE
     Indication: TESTIS CANCER
     Dosage: UNK
     Dates: start: 201603
  5. ERWINASE [Suspect]
     Active Substance: ASPARAGINASE ERWINIA CHRYSANTHEMI
     Indication: TESTIS CANCER
     Dosage: 20000 IU/M2, SINGLE
     Route: 042
     Dates: start: 20160321, end: 20160321
  6. MITOXANTRONE [Concomitant]
     Active Substance: MITOXANTRONE HYDROCHLORIDE
     Indication: TESTIS CANCER
     Dosage: UNK
     Dates: start: 201603

REACTIONS (3)
  - Erythema [Recovered/Resolved]
  - Vomiting [Recovered/Resolved]
  - Abdominal pain [Recovered/Resolved]

NARRATIVE: CASE EVENT DATE: 20160321
